FAERS Safety Report 7691701-0 (Version None)
Quarter: 2011Q3

REPORT INFORMATION
  Report Type: 
  Country: None (occurrence: None)
  Receive Date: 20110818
  Receipt Date: 20110805
  Transmission Date: 20111222
  Serious: Yes (Hospitalization)
  Sender: FDA-Public Use
  Company Number: US-GLAXOSMITHKLINE-A0890689A

PATIENT
  Age: 82 Year
  Sex: Male
  Weight: 80 kg

DRUGS (6)
  1. PRAVACHOL [Concomitant]
  2. HYDROCHLOROTHIAZIDE [Concomitant]
  3. AVANDIA [Suspect]
     Indication: DIABETES MELLITUS
     Dosage: 4MG PER DAY
     Route: 048
     Dates: start: 20031202, end: 20070522
  4. ZETIA [Concomitant]
  5. LOPID [Concomitant]
  6. TIAZAC [Concomitant]

REACTIONS (7)
  - CHEST PAIN [None]
  - CORONARY ARTERIAL STENT INSERTION [None]
  - MYOCARDIAL INFARCTION [None]
  - CEREBROVASCULAR ACCIDENT [None]
  - NAUSEA [None]
  - MUSCULAR WEAKNESS [None]
  - ERUCTATION [None]
